FAERS Safety Report 4318852-2 (Version None)
Quarter: 2004Q1

REPORT INFORMATION
  Report Type: 
  Country: None (occurrence: None)
  Receive Date: 20040315
  Receipt Date: 20040301
  Transmission Date: 20041129
  Serious: Yes (Other)
  Sender: FDA-Public Use
  Company Number: ENZ-ABE-162

PATIENT
  Age: 50 Year
  Sex: Female
  Weight: 61.2 kg

DRUGS (44)
  1. ABELCT (AMPHOTERICIN B LIPID COMPLEX INJ) [Suspect]
     Indication: BRONCHOPULMONARY ASPERGILLOSIS
     Dosage: 5 MG/KG QD IV
     Route: 042
     Dates: start: 20040126, end: 20040226
  2. CODEINE [Suspect]
     Dosage: IV
     Route: 042
  3. ARA-C [Concomitant]
  4. PLATELETS 5 UNIT IV [Concomitant]
  5. PACKED RED CELLS 2 UNITS IV PRN [Concomitant]
  6. PLATELETS 5 UNITS IV [Concomitant]
  7. TPN [Concomitant]
  8. OMEPRAZOLE [Concomitant]
  9. NEUPOGEN [Concomitant]
  10. CIPROFLOXACIN [Concomitant]
  11. FAMCICLOVIR [Concomitant]
  12. PIPERACILLIN/TAZOBACTAM [Concomitant]
  13. MYSTATIN MOUTHWASH [Concomitant]
  14. MINOVRAL [Concomitant]
  15. METRONIDAZOLE [Concomitant]
  16. ATENOLOL [Concomitant]
  17. VANCOMYCIN HYDROCHLORIDE [Concomitant]
  18. BENADRYL [Concomitant]
  19. FLUCONAZOLE [Concomitant]
  20. AZITHROMYCIN [Concomitant]
  21. SLOW K TABS [Concomitant]
  22. TYLENOL (CAPLET) [Concomitant]
  23. SODIUM CHLORIDE 0.9% [Concomitant]
  24. DEMEROL [Concomitant]
  25. GRANISETRON [Concomitant]
  26. MAXERAN [Concomitant]
  27. DITROPAN [Concomitant]
  28. DOMPERIDONE [Concomitant]
  29. MORPHINE [Concomitant]
  30. ATIVAN [Concomitant]
  31. EMLA [Concomitant]
  32. CODEINE [Concomitant]
  33. GRAVOL TAB [Concomitant]
  34. OVAL DROPS [Concomitant]
  35. PROCHLORPERAZINE [Concomitant]
  36. KCL CONTINUOUS INFUSION [Concomitant]
  37. MIDAZOLAM HCL [Concomitant]
  38. OXYGEN [Concomitant]
  39. MIDAZOLAM HCL [Concomitant]
  40. LIDOCAINE [Concomitant]
  41. NON-IONIC CONTRAST IV [Concomitant]
  42. OPTIRAY 160 [Concomitant]
  43. GADOLINIUM CONTRAST [Concomitant]
  44. DEMORAL [Concomitant]

REACTIONS (10)
  - ERYTHEMA MULTIFORME [None]
  - FEBRILE NEUTROPENIA [None]
  - OEDEMA PERIPHERAL [None]
  - PAIN OF SKIN [None]
  - PALLOR [None]
  - PRURITUS [None]
  - PURPURA [None]
  - RASH FOLLICULAR [None]
  - RASH GENERALISED [None]
  - SKIN DESQUAMATION [None]
